FAERS Safety Report 4639873-6 (Version None)
Quarter: 2005Q2

REPORT INFORMATION
  Report Type: 
  Country: None (occurrence: None)
  Receive Date: 20050420
  Receipt Date: 20040415
  Transmission Date: 20051028
  Serious: Yes (Hospitalization)
  Sender: FDA-Public Use
  Company Number: GB-ABBOTT-04P-167-0257790-00

PATIENT
  Sex: Female

DRUGS (20)
  1. HUMIRA [Suspect]
     Indication: RHEUMATOID ARTHRITIS
     Route: 058
     Dates: start: 20030721
  2. PENICILLAMINE [Concomitant]
     Indication: RHEUMATOID ARTHRITIS
     Route: 048
     Dates: start: 19890101, end: 19890407
  3. GOLD [Concomitant]
     Indication: RHEUMATOID ARTHRITIS
     Route: 030
     Dates: start: 19980407, end: 20000101
  4. SULFASALAZINE [Concomitant]
     Indication: RHEUMATOID ARTHRITIS
     Route: 048
     Dates: start: 20010410, end: 20010726
  5. METHOTREXATE [Concomitant]
     Indication: RHEUMATOID ARTHRITIS
     Route: 048
     Dates: start: 20011211, end: 20020122
  6. METHOTREXATE [Concomitant]
     Route: 058
     Dates: start: 20020129, end: 20020601
  7. LEFLUNOMIDE [Concomitant]
     Indication: RHEUMATOID ARTHRITIS
     Route: 048
     Dates: start: 20031112
  8. ALENDRONATE SODIUM [Concomitant]
     Indication: OSTEOPOROSIS
     Route: 048
     Dates: start: 20020101
  9. CALCICHEW D3 FORTE [Concomitant]
     Indication: OSTEOPOROSIS
     Route: 048
     Dates: start: 20020101
  10. TYLEX [Concomitant]
     Indication: PAIN
     Route: 048
     Dates: start: 19980101
  11. ARTHROTEC [Concomitant]
     Indication: PAIN
     Route: 048
     Dates: start: 20010101, end: 20031111
  12. ISONIAZID [Concomitant]
     Indication: TUBERCULOSIS
     Route: 048
     Dates: start: 20030805
  13. PYRIDOXINE HCL [Concomitant]
     Indication: TUBERCULOSIS
     Route: 048
     Dates: start: 20030805
  14. PYRIDOXINE HCL [Concomitant]
     Indication: NEUROPATHY
  15. VENLAFAXINE HCL [Concomitant]
     Indication: DEPRESSION
     Dates: start: 20030823
  16. FLU VACCINE [Concomitant]
     Indication: PROPHYLAXIS
     Route: 058
     Dates: start: 20031006, end: 20031006
  17. TRIAMCINOLONE ACETONIDE [Concomitant]
     Indication: SYNOVITIS
     Dates: start: 20031020, end: 20031020
  18. CELECOXIB [Concomitant]
     Indication: BACK PAIN
     Route: 048
     Dates: start: 20031112
  19. CIPRALEX [Concomitant]
     Indication: DEPRESSION
     Route: 048
     Dates: start: 20031029
  20. CLOBETASOL PROPIONATE [Concomitant]
     Indication: PSORIASIS
     Route: 061
     Dates: start: 20031111

REACTIONS (2)
  - FALL [None]
  - MULTIPLE FRACTURES [None]
